FAERS Safety Report 24977241 (Version 1)
Quarter: 2025Q1

REPORT INFORMATION
  Report Type: Report from Study
  Country: BE (occurrence: BE)
  Receive Date: 20250217
  Receipt Date: 20250217
  Transmission Date: 20250409
  Serious: Yes (Hospitalization)
  Sender: MYLAN
  Company Number: BE-JNJFOC-20250172387

PATIENT
  Age: 74 Year
  Sex: Male
  Weight: 77 kg

DRUGS (9)
  1. LOPERAMIDE [Suspect]
     Active Substance: LOPERAMIDE
     Indication: Antidiarrhoeal supportive care
     Route: 048
     Dates: start: 20240415
  2. BEVACIZUMAB [Suspect]
     Active Substance: BEVACIZUMAB
     Indication: Rectal adenocarcinoma
     Dosage: 5 MILLIGRAM/KILOGRAM, Q2W
     Route: 042
     Dates: start: 20240415
  3. FLUOROURACIL [Suspect]
     Active Substance: FLUOROURACIL
     Indication: Rectal adenocarcinoma
     Dosage: 260 MILLIGRAM/SQ. METER, Q2W
     Route: 042
  4. FLUOROURACIL [Suspect]
     Active Substance: FLUOROURACIL
     Dosage: 50 MILLIGRAM/SQ. METER, Q2W
     Route: 042
  5. LEVOLEUCOVORIN CALCIUM [Suspect]
     Active Substance: LEVOLEUCOVORIN CALCIUM
     Indication: Rectal adenocarcinoma
     Dosage: 200 MILLIGRAM, Q2W
     Route: 042
  6. CALCIUM CARBONATE [Concomitant]
     Active Substance: CALCIUM CARBONATE
     Indication: Prophylaxis
     Route: 048
     Dates: start: 20240723
  7. DUTASTERIDE [Concomitant]
     Active Substance: DUTASTERIDE
     Route: 065
  8. TAMSULOSIN [Concomitant]
     Active Substance: TAMSULOSIN
     Indication: Benign prostatic hyperplasia
     Route: 065
     Dates: start: 20241116
  9. TRAMADOL HYDROCHLORIDE [Concomitant]
     Active Substance: TRAMADOL HYDROCHLORIDE
     Indication: Proctalgia
     Route: 065
     Dates: start: 20241231

REACTIONS (1)
  - Decreased appetite [Recovered/Resolved]

NARRATIVE: CASE EVENT DATE: 20250102
